FAERS Safety Report 10073140 (Version 3)
Quarter: 2014Q2

REPORT INFORMATION
  Report Type: Report from Study
  Country: CA (occurrence: CA)
  Receive Date: 20140411
  Receipt Date: 20140508
  Transmission Date: 20141212
  Serious: Yes (Other)
  Sender: FDA-Public Use
  Company Number: PHHO2014CA005234

PATIENT
  Age: 53 Year
  Sex: Female
  Weight: 72.1 kg

DRUGS (1)
  1. FTY 720 [Suspect]
     Indication: PRIMARY PROGRESSIVE MULTIPLE SCLEROSIS
     Dosage: 0.5 MG, UNK
     Route: 048
     Dates: start: 20100811

REACTIONS (1)
  - Basal cell carcinoma [Recovered/Resolved]
